FAERS Safety Report 23986865 (Version 1)
Quarter: 2024Q2

REPORT INFORMATION
  Report Type: Spontaneous
  Country: US (occurrence: US)
  Receive Date: 20240618
  Receipt Date: 20240618
  Transmission Date: 20240716
  Serious: Yes (Other)
  Sender: FDA-Public Use
  Company Number: US-PFIZER INC-PV202400078670

PATIENT
  Age: 53 Year
  Sex: Female

DRUGS (2)
  1. EPINEPHRINE [Suspect]
     Active Substance: EPINEPHRINE
     Indication: Heart rate decreased
     Dosage: UNK
  2. NITROSTAT [Concomitant]
     Active Substance: NITROGLYCERIN
     Dosage: [PLACE 0.4 MG UNDER THE TONGUE EVERY 5 (FIVE) MINUTES AS NEEDED]
     Route: 060

REACTIONS (3)
  - Cardiac arrest [Unknown]
  - Drug hypersensitivity [Unknown]
  - Off label use [Unknown]
